FAERS Safety Report 7391367-3 (Version None)
Quarter: 2011Q2

REPORT INFORMATION
  Report Type: 
  Country: None (occurrence: None)
  Receive Date: 20110404
  Receipt Date: 20110307
  Transmission Date: 20111010
  Serious: No
  Sender: FDA-Public Use
  Company Number: US-B.I. PHARMACEUTICALS,INC./RIDGEFIELD-2011-BP-07127BP

PATIENT
  Age: 55 Year
  Sex: Male

DRUGS (3)
  1. PRADAXA [Suspect]
     Indication: ATRIAL FIBRILLATION
     Dosage: 300 MG
     Route: 048
     Dates: start: 20110303, end: 20110305
  2. VERAPAMIL [Concomitant]
  3. QVAR 40 [Concomitant]
     Indication: ASTHMA

REACTIONS (3)
  - HAEMORRHOIDS [None]
  - DIARRHOEA [None]
  - FREQUENT BOWEL MOVEMENTS [None]
